FAERS Safety Report 7744975 (Version 6)
Quarter: 2013Q3

REPORT INFORMATION
  Report Type: Report from Study
  Country: US (occurrence: US)
  Receive Date: 20101231
  Receipt Date: 20130925
  Transmission Date: 20140515
  Serious: Yes (Hospitalization)
  Sender: FDA-Public Use
  Company Number: US-BIOGENIDEC-2010BI026406

PATIENT
  Age: 41 Year
  Sex: Female

DRUGS (4)
  1. TYSABRI [Suspect]
     Indication: MULTIPLE SCLEROSIS
     Route: 042
     Dates: start: 20080418, end: 20100709
  2. PRENATAL VITAMINS [Concomitant]
  3. WELLBUTRIN [Concomitant]
  4. CARBAMAZEPINE [Concomitant]

REACTIONS (5)
  - Complication of pregnancy [Recovered/Resolved]
  - Shortened cervix [Recovered/Resolved]
  - Premature labour [Recovered/Resolved]
  - Cervical incompetence [Recovered/Resolved]
  - Pregnancy [Recovered/Resolved]
